FAERS Safety Report 9330861 (Version 1)
Quarter: 2013Q2

REPORT INFORMATION
  Report Type: Spontaneous
  Country: US (occurrence: None)
  Receive Date: 20130604
  Receipt Date: 20130604
  Transmission Date: 20140414
  Serious: Yes (Life-Threatening)
  Sender: FDA-Public Use
  Company Number: None

PATIENT
  Age: 4 Year
  Sex: Female

DRUGS (1)
  1. KEPPRA [Suspect]
     Dosage: 10CC QHS
     Route: 048

REACTIONS (3)
  - Convulsion [None]
  - Fear [None]
  - Unevaluable event [None]
